FAERS Safety Report 9739078 (Version 2)
Quarter: 2014Q1

REPORT INFORMATION
  Report Type: Spontaneous
  Country: JP (occurrence: JP)
  Receive Date: 20131209
  Receipt Date: 20140115
  Transmission Date: 20141002
  Serious: Yes (Other)
  Sender: FDA-Public Use
  Company Number: JP-ROCHE-1313086

PATIENT
  Age: 3 Year
  Sex: Male
  Weight: 14.4 kg

DRUGS (3)
  1. PEGASYS [Suspect]
     Indication: CHRONIC HEPATITIS C
     Route: 058
     Dates: start: 20110826
  2. HIRUDOID OINTMENT [Concomitant]
     Indication: DRY SKIN
     Dosage: PROPER QUANTITY
     Route: 003
     Dates: start: 20111220
  3. DIAPP [Concomitant]
     Indication: FEBRILE CONVULSION
     Route: 054
     Dates: start: 20120508

REACTIONS (2)
  - Failure to thrive [Recovering/Resolving]
  - Pyrexia [Recovering/Resolving]
